FAERS Safety Report 9471346 (Version 2)
Quarter: 2013Q3

REPORT INFORMATION
  Report Type: Spontaneous
  Country: GB (occurrence: GB)
  Receive Date: 20130822
  Receipt Date: 20130903
  Transmission Date: 20140515
  Serious: Yes (Other)
  Sender: FDA-Public Use
  Company Number: GB-TEVA-426697ISR

PATIENT
  Age: 39 Year
  Sex: Male
  Weight: 62 kg

DRUGS (1)
  1. COPAXONE [Suspect]
     Indication: PRODUCT USED FOR UNKNOWN INDICATION
     Dosage: 20 MILLIGRAM DAILY;
     Route: 058
     Dates: end: 20130810

REACTIONS (11)
  - Suicidal ideation [Unknown]
  - Aggression [Unknown]
  - Irritability [Unknown]
  - Depression [Not Recovered/Not Resolved]
  - Personality change [Unknown]
  - Abnormal behaviour [Unknown]
  - Chest pain [Recovered/Resolved]
  - Rash [Unknown]
  - Anxiety [Recovering/Resolving]
  - Irritability [Not Recovered/Not Resolved]
  - Exercise tolerance decreased [Unknown]
